FAERS Safety Report 10214261 (Version 1)
Quarter: 2014Q2

REPORT INFORMATION
  Report Type: Spontaneous
  Country: IT (occurrence: None)
  Receive Date: 20140530
  Receipt Date: 20140530
  Transmission Date: 20141212
  Serious: Yes (Hospitalization, Other)
  Sender: FDA-Public Use
  Company Number: KAD201405-000552

PATIENT
  Age: 65 Year
  Sex: Male

DRUGS (4)
  1. RIBAVIRIN (RIBAVIRIN) [Suspect]
     Indication: CHRONIC HEPATITIS C
     Dates: start: 200707
  2. PEGINTERFERON ALFA-2B (PEGINTERFERON ALFA-2B) [Suspect]
     Indication: CHRONIC HEPATITIS C
     Dates: start: 200707
  3. PEGINTERFERON ALFA-2A (PEGINTERFERON ALFA-2A) [Suspect]
     Indication: CHRONIC HEPATITIS C
     Dates: start: 201303
  4. TELAPREVIR (TELAPREVIR) [Suspect]
     Indication: CHRONIC HEPATITIS C
     Dates: start: 201303

REACTIONS (11)
  - Pneumonia legionella [None]
  - Platelet count decreased [None]
  - Haemoglobin decreased [None]
  - Rash erythematous [None]
  - Diarrhoea [None]
  - Confusional state [None]
  - Hyponatraemia [None]
  - Alanine aminotransferase increased [None]
  - Aspartate aminotransferase increased [None]
  - No therapeutic response [None]
  - Rash maculo-papular [None]
